FAERS Safety Report 9589006 (Version 1)
Quarter: 2013Q4

REPORT INFORMATION
  Report Type: Spontaneous
  Country: US (occurrence: US)
  Receive Date: 20131003
  Receipt Date: 20131003
  Transmission Date: 20140711
  Serious: No
  Sender: FDA-Public Use
  Company Number: US-AMGEN-USASP2012067270

PATIENT
  Age: 44 Year
  Sex: Female
  Weight: 126.98 kg

DRUGS (5)
  1. ENBREL [Suspect]
     Indication: PSORIASIS
     Dosage: 50 MG, 2 TIMES/WK
     Route: 058
     Dates: start: 200904
  2. CYMBALTA [Concomitant]
     Dosage: 30 MG, UNK
  3. LISINOPRIL [Concomitant]
     Dosage: 20 MG, UNK
  4. VITAMIN C                          /00008001/ [Concomitant]
     Dosage: 1000 MG, UNK
  5. METOPROLOL [Concomitant]
     Dosage: 25 MG, UNK

REACTIONS (2)
  - Oropharyngeal pain [Recovered/Resolved]
  - Infection [Recovered/Resolved]
